FAERS Safety Report 6793209-3 (Version None)
Quarter: 2010Q2

REPORT INFORMATION
  Report Type: 
  Country: None (occurrence: None)
  Receive Date: 20100624
  Receipt Date: 20090817
  Transmission Date: 20101027
  Serious: Yes (Other)
  Sender: FDA-Public Use
  Company Number: US-MYLANLABS-2009S1014065

PATIENT
  Age: 27 Year
  Sex: Male

DRUGS (8)
  1. CLOZAPINE [Suspect]
     Route: 048
     Dates: start: 20090702, end: 20090801
  2. BENZTROPINE MESYLATE [Concomitant]
  3. CLONAZEPAM [Concomitant]
  4. DIVALPROEX SODIUM EXTENDED RELEASE [Concomitant]
  5. LITHIUM CARBONATE [Concomitant]
  6. NOTEZINE [Concomitant]
  7. RISPERIDONE [Concomitant]
  8. SERTRALINE HCL [Concomitant]

REACTIONS (1)
  - GRANULOCYTOPENIA [None]
